FAERS Safety Report 5026983-7 (Version None)
Quarter: 2006Q2

REPORT INFORMATION
  Report Type: 
  Country: None (occurrence: None)
  Receive Date: 20060615
  Receipt Date: 20060531
  Transmission Date: 20061013
  Serious: Yes (Other)
  Sender: FDA-Public Use
  Company Number: SE-NOVOPROD-254077

PATIENT
  Age: 5 Year
  Sex: Female
  Weight: 23 kg

DRUGS (2)
  1. INSULATARD HM(GE) [Suspect]
     Indication: DIABETES MELLITUS INSULIN-DEPENDENT
     Dates: start: 19951018
  2. ACTRAPID HM(GE) [Suspect]
     Indication: DIABETES MELLITUS INSULIN-DEPENDENT
     Dates: start: 19951018

REACTIONS (1)
  - CONVULSION [None]
